FAERS Safety Report 20532263 (Version 4)
Quarter: 2022Q2

REPORT INFORMATION
  Report Type: Spontaneous
  Country: US (occurrence: US)
  Receive Date: 20220301
  Receipt Date: 20220414
  Transmission Date: 20220720
  Serious: Yes (Death, Hospitalization, Other)
  Sender: FDA-Public Use
  Company Number: US-PFIZER INC-202101877988

PATIENT
  Age: 86 Year
  Sex: Male
  Weight: 70.76 kg

DRUGS (1)
  1. VYNDAMAX [Suspect]
     Active Substance: TAFAMIDIS
     Indication: Cardiac failure
     Dosage: 61 MG, 1X/DAY
     Dates: start: 20210922

REACTIONS (7)
  - Death [Fatal]
  - Thrombosis [Unknown]
  - Cardiac failure [Unknown]
  - Renal disorder [Unknown]
  - Off label use [Unknown]
  - Chills [Unknown]
  - Dyspnoea [Unknown]

NARRATIVE: CASE EVENT DATE: 20210922
